FAERS Safety Report 4505229-X (Version None)
Quarter: 2004Q4

REPORT INFORMATION
  Report Type: 
  Country: None (occurrence: None)
  Receive Date: 20041116
  Receipt Date: 20041028
  Transmission Date: 20050328
  Serious: Yes (Death)
  Sender: FDA-Public Use
  Company Number: 240174

PATIENT

DRUGS (1)
  1. NOVOSEVEN [Suspect]
     Indication: INTRA-ABDOMINAL HAEMORRHAGE
     Dosage: 2X90 UG/KG Q 2 H

REACTIONS (5)
  - COAGULOPATHY [None]
  - HAEMODIALYSIS [None]
  - HEPATITIS [None]
  - MULTI-ORGAN FAILURE [None]
  - THERAPY NON-RESPONDER [None]
